FAERS Safety Report 17347841 (Version 1)
Quarter: 2020Q1

REPORT INFORMATION
  Report Type: Spontaneous
  Country: MD (occurrence: MD)
  Receive Date: 20200130
  Receipt Date: 20200130
  Transmission Date: 20200409
  Serious: Yes (Life-Threatening)
  Sender: FDA-Public Use
  Company Number: MD-MYLANLABS-2020M1010803

PATIENT
  Age: 35 Year
  Sex: Female
  Weight: 97 kg

DRUGS (1)
  1. EFAVIRENZ,EMTRICITABINE,TENOFOVIR MYLAN [Suspect]
     Active Substance: EFAVIRENZ\EMTRICITABINE\TENOFOVIR DISOPROXIL FUMARATE
     Indication: HIV INFECTION
     Dosage: 1 DOSAGE FORM, QD
     Route: 048
     Dates: start: 20171003, end: 20171004

REACTIONS (4)
  - Pruritus [Recovering/Resolving]
  - Dyspnoea [Recovering/Resolving]
  - Lip oedema [Recovering/Resolving]
  - Eyelid oedema [Recovering/Resolving]

NARRATIVE: CASE EVENT DATE: 20171004
